FAERS Safety Report 15198489 (Version 1)
Quarter: 2018Q3

REPORT INFORMATION
  Report Type: Spontaneous
  Country: US (occurrence: US)
  Receive Date: 20180627
  Receipt Date: 20180627
  Transmission Date: 20181010
  Serious: No
  Sender: FDA-Public Use
  Company Number: None

PATIENT
  Age: 28 Year
  Sex: Female
  Weight: 86.4 kg

DRUGS (3)
  1. ZZQUIL? ALCOHOL FREE [Concomitant]
  2. BONJESTA [Suspect]
     Active Substance: DOXYLAMINE SUCCINATE\PYRIDOXINE HYDROCHLORIDE
     Indication: VOMITING IN PREGNANCY
     Dosage: ?          QUANTITY:1 TABLET(S);?
     Route: 048
     Dates: start: 20180609, end: 20180615
  3. ONE A DAY PRENATAL [Concomitant]

REACTIONS (4)
  - Opiates positive [None]
  - Pregnancy [None]
  - Agitation [None]
  - Drug screen false positive [None]

NARRATIVE: CASE EVENT DATE: 20180620
